FAERS Safety Report 5475894-1 (Version None)
Quarter: 2007Q4

REPORT INFORMATION
  Report Type: 
  Country: None (occurrence: None)
  Receive Date: 20071003
  Receipt Date: 20070928
  Transmission Date: 20080405
  Serious: Yes (Other)
  Sender: FDA-Public Use
  Company Number: GB-BRISTOL-MYERS SQUIBB COMPANY-13923172

PATIENT
  Age: 77 Year
  Sex: Male
  Weight: 92 kg

DRUGS (5)
  1. IRBESARTAN [Suspect]
     Dates: start: 20070723, end: 20070905
  2. ASPIRIN [Concomitant]
     Route: 048
     Dates: start: 20050331
  3. BENDROFLUMETHIAZIDE [Concomitant]
     Route: 048
     Dates: start: 20070411
  4. BISOPROLOL FUMARATE [Concomitant]
     Route: 048
     Dates: start: 20060627
  5. METFORMIN HCL [Concomitant]
     Route: 048
     Dates: start: 20050715

REACTIONS (2)
  - ONYCHOMADESIS [None]
  - PARAESTHESIA [None]
